FAERS Safety Report 5381246-5 (Version None)
Quarter: 2007Q3

REPORT INFORMATION
  Report Type: 
  Country: None (occurrence: None)
  Receive Date: 20070706
  Receipt Date: 20070626
  Transmission Date: 20080115
  Serious: Yes (Other)
  Sender: FDA-Public Use
  Company Number: CA-PFIZER INC-2007053886

PATIENT
  Age: 24 Year
  Sex: Female

DRUGS (2)
  1. CHAMPIX [Suspect]
  2. CONTRACEPTIVE, UNSPECIFIED [Concomitant]

REACTIONS (1)
  - HAEMATOCHEZIA [None]
